FAERS Safety Report 5508855-4 (Version None)
Quarter: 2007Q4

REPORT INFORMATION
  Report Type: 
  Country: None (occurrence: None)
  Receive Date: 20071107
  Receipt Date: 20071029
  Transmission Date: 20080405
  Serious: Yes (Other)
  Sender: FDA-Public Use
  Company Number: FI-AVENTIS-200719871GDDC

PATIENT
  Age: 15 Year
  Sex: Male

DRUGS (2)
  1. METRONIDAZOLE [Suspect]
     Route: 042
  2. CLINDAMYCIN HCL [Suspect]
     Route: 042

REACTIONS (5)
  - ALCOHOL INTOLERANCE [None]
  - COLD SWEAT [None]
  - HYPOTENSION [None]
  - PALLOR [None]
  - PALPITATIONS [None]
